FAERS Safety Report 6044959-8 (Version None)
Quarter: 2009Q1

REPORT INFORMATION
  Report Type: 
  Country: None (occurrence: None)
  Receive Date: 20090121
  Receipt Date: 20090114
  Transmission Date: 20090719
  Serious: Yes (Other)
  Sender: FDA-Public Use
  Company Number: JP-JNJFOC-20081106259

PATIENT
  Age: 72 Year
  Sex: Male

DRUGS (5)
  1. RISPERDAL [Suspect]
     Indication: DRUG USE FOR UNKNOWN INDICATION
     Route: 048
  2. AKIRIDEN [Concomitant]
     Route: 048
  3. GASMOTIN [Concomitant]
     Route: 048
  4. MAGNESIUM OXIDE [Concomitant]
     Route: 048
  5. SENNOSIDE [Concomitant]
     Route: 048

REACTIONS (2)
  - ANAEMIA [None]
  - NEOPLASM MALIGNANT [None]
